FAERS Safety Report 9135115 (Version 1)
Quarter: 2013Q1

REPORT INFORMATION
  Report Type: Spontaneous
  Country: US (occurrence: US)
  Receive Date: 20130304
  Receipt Date: 20130304
  Transmission Date: 20140127
  Serious: No
  Sender: FDA-Public Use
  Company Number: US-COVIDIEN/TYCO HEALTHCARE/MALLINCKRODT-T201201526

PATIENT
  Sex: Female
  Weight: 108.84 kg

DRUGS (2)
  1. RESTORIL [Suspect]
     Indication: INSOMNIA
     Dosage: 30 MG, AT NIGHT
     Route: 048
  2. LORAZEPAM [Concomitant]

REACTIONS (2)
  - Insomnia [Unknown]
  - Middle insomnia [Unknown]
